FAERS Safety Report 9297059 (Version 1)
Quarter: 2013Q2

REPORT INFORMATION
  Report Type: Spontaneous
  Country: US (occurrence: US)
  Receive Date: 20130519
  Receipt Date: 20130519
  Transmission Date: 20140414
  Serious: No
  Sender: FDA-Public Use
  Company Number: US-ALLERGAN-1303212US

PATIENT
  Age: 74 Year
  Sex: Female

DRUGS (5)
  1. LASTACAFT [Suspect]
     Indication: EYE ALLERGY
     Dosage: UNK
     Dates: start: 201302
  2. LASTACAFT [Suspect]
     Dosage: UNK
     Dates: start: 201208, end: 201211
  3. PRILOSEC                           /00661201/ [Concomitant]
     Indication: GASTROOESOPHAGEAL REFLUX DISEASE
     Dosage: 20 MG, QD
     Route: 048
  4. CALCIUM [Concomitant]
     Indication: MINERAL SUPPLEMENTATION
     Dosage: UNK
     Route: 048
  5. REFRESH PLUS [Concomitant]
     Indication: DRY EYE
     Dosage: UNK
     Route: 047
     Dates: end: 201212

REACTIONS (2)
  - Ocular hyperaemia [Unknown]
  - Eye pruritus [Unknown]
